FAERS Safety Report 5575388-9 (Version None)
Quarter: 2007Q4

REPORT INFORMATION
  Report Type: 
  Country: None (occurrence: None)
  Receive Date: 20071227
  Receipt Date: 20071219
  Transmission Date: 20080405
  Serious: Yes (Hospitalization, Other)
  Sender: FDA-Public Use
  Company Number: IE-BOEHRINGER INGELHEIM PHARMACEUTICALS, INC.-2007-DE-07457GD

PATIENT
  Age: 11 Year
  Sex: Female

DRUGS (2)
  1. CLONIDINE [Suspect]
     Indication: TOURETTE'S DISORDER
  2. RISPERIDONE [Suspect]
     Indication: TOURETTE'S DISORDER

REACTIONS (2)
  - CONDITION AGGRAVATED [None]
  - TRANSIENT ISCHAEMIC ATTACK [None]
